FAERS Safety Report 16581816 (Version 1)
Quarter: 2019Q3

REPORT INFORMATION
  Report Type: Spontaneous
  Country: US (occurrence: US)
  Receive Date: 20190716
  Receipt Date: 20190716
  Transmission Date: 20191004
  Serious: No
  Sender: FDA-Public Use
  Company Number: US-PERRIGO-18US014917

PATIENT
  Age: 71 Year
  Sex: Female
  Weight: 48.07 kg

DRUGS (3)
  1. INTRAROSA [Concomitant]
     Active Substance: PRASTERONE
     Indication: VAGINAL DISORDER
     Dosage: UNK
     Route: 065
     Dates: start: 201809
  2. PROTONIX                           /00661201/ [Concomitant]
     Active Substance: OMEPRAZOLE
     Indication: GASTROOESOPHAGEAL REFLUX DISEASE
     Dosage: UNK
     Route: 065
     Dates: start: 2008
  3. MICONAZOLE 1 [Suspect]
     Active Substance: MICONAZOLE NITRATE
     Indication: VULVOVAGINAL MYCOTIC INFECTION
     Dosage: 1200 MG, SINGLE
     Route: 067
     Dates: start: 20181220, end: 20181220

REACTIONS (2)
  - Vaginal discharge [Recovered/Resolved]
  - Vulvovaginal burning sensation [Not Recovered/Not Resolved]

NARRATIVE: CASE EVENT DATE: 20181220
